FAERS Safety Report 12296080 (Version 1)
Quarter: 2016Q2

REPORT INFORMATION
  Report Type: Spontaneous
  Country: US (occurrence: US)
  Receive Date: 20160422
  Receipt Date: 20160422
  Transmission Date: 20160815
  Serious: Yes (Other)
  Sender: FDA-Public Use
  Company Number: US-ASTRAZENECA-2016SE41093

PATIENT
  Sex: Male

DRUGS (1)
  1. CRESTOR [Suspect]
     Active Substance: ROSUVASTATIN CALCIUM
     Route: 048

REACTIONS (11)
  - Pain [Unknown]
  - Dysphagia [Unknown]
  - Fatigue [Unknown]
  - Amnesia [Unknown]
  - Musculoskeletal stiffness [Unknown]
  - Choking [Unknown]
  - Tendon pain [Unknown]
  - Nervous system disorder [Unknown]
  - Dyskinesia [Unknown]
  - Sleep disorder [Unknown]
  - Myalgia [Unknown]
